FAERS Safety Report 16724894 (Version 1)
Quarter: 2019Q3

REPORT INFORMATION
  Report Type: Spontaneous
  Country: US (occurrence: US)
  Receive Date: 20190821
  Receipt Date: 20190821
  Transmission Date: 20191005
  Serious: No
  Sender: FDA-Public Use
  Company Number: US-PFIZER INC-2018124802

PATIENT
  Age: 57 Year
  Sex: Female

DRUGS (1)
  1. LYRICA [Suspect]
     Active Substance: PREGABALIN
     Indication: MYALGIA
     Dosage: 300 MG, 2X/DAY (TAKE ONE CAPSULE ORALLY TWICE A DAY)
     Route: 048
     Dates: start: 20160714

REACTIONS (3)
  - Off label use [Unknown]
  - Arthritis [Unknown]
  - Product use in unapproved indication [Unknown]
